FAERS Safety Report 9888621 (Version 1)
Quarter: 2014Q1

REPORT INFORMATION
  Report Type: Spontaneous
  Country: US (occurrence: None)
  Receive Date: 20140207
  Receipt Date: 20140207
  Transmission Date: 20141002
  Serious: Yes (Death)
  Sender: FDA-Public Use
  Company Number: SYM-2014-16166

PATIENT
  Age: 65 Year
  Sex: Male

DRUGS (2)
  1. SALICYLATE (SALICYLATES NOS) [Suspect]
     Indication: PRODUCT USED FOR UNKNOWN INDICATION
     Route: 048
  2. ISOSORBIDE DINITRATE (ISOSORBIDE DINITRATE) (ISOSORBIDE DINITRATE) [Suspect]
     Indication: PRODUCT USED FOR UNKNOWN INDICATION
     Route: 048

REACTIONS (1)
  - Drug abuse [None]
